FAERS Safety Report 4947602-1 (Version None)
Quarter: 2006Q1

REPORT INFORMATION
  Report Type: 
  Country: None (occurrence: None)
  Receive Date: 20060314
  Receipt Date: 20060303
  Transmission Date: 20060701
  Serious: Yes (Hospitalization)
  Sender: FDA-Public Use
  Company Number: 2006031183

PATIENT
  Age: 81 Year
  Sex: Male

DRUGS (5)
  1. AMLODIPINE [Suspect]
     Indication: HYPERTENSION
     Dosage: 5 MG (5 MG, 1 IN 1 D), ORAL
     Route: 048
     Dates: end: 20060221
  2. ASPIRIN [Concomitant]
  3. PREDNISOLONE [Concomitant]
  4. ALENDRONIC ACID (ALENDRONIC ACID) [Concomitant]
  5. ALLOPURINOL [Concomitant]

REACTIONS (3)
  - CLAVICLE FRACTURE [None]
  - FALL [None]
  - LOSS OF CONSCIOUSNESS [None]
